FAERS Safety Report 20736160 (Version 2)
Quarter: 2022Q2

REPORT INFORMATION
  Report Type: Report from Study
  Country: PH (occurrence: PH)
  Receive Date: 20220421
  Receipt Date: 20220527
  Transmission Date: 20220720
  Serious: Yes (Death)
  Sender: FDA-Public Use
  Company Number: PH-NOVARTISPH-NVSC2022PH092188

PATIENT
  Sex: Female

DRUGS (1)
  1. ENTRESTO [Suspect]
     Active Substance: SACUBITRIL\VALSARTAN
     Indication: Cardiac failure
     Dosage: 50 MG, BID (1 TAB)
     Route: 065
     Dates: start: 202106

REACTIONS (2)
  - Myocardial infarction [Fatal]
  - Dyspnoea [Unknown]

NARRATIVE: CASE EVENT DATE: 20211229
